FAERS Safety Report 6095406-1 (Version None)
Quarter: 2009Q1

REPORT INFORMATION
  Report Type: 
  Country: None (occurrence: None)
  Receive Date: 20090227
  Receipt Date: 20080326
  Transmission Date: 20090719
  Serious: No
  Sender: FDA-Public Use
  Company Number: A0717585A

PATIENT
  Age: 58 Year
  Sex: Female

DRUGS (4)
  1. LAMICTAL [Suspect]
     Indication: BIPOLAR DISORDER
     Dosage: 100MG AT NIGHT
     Route: 048
     Dates: start: 20080101
  2. TRAZODONE HCL [Concomitant]
  3. SYNTHROID [Concomitant]
  4. ATENOLOL [Concomitant]

REACTIONS (7)
  - AMNESIA [None]
  - ANXIETY [None]
  - ARTHRALGIA [None]
  - EMOTIONAL DISORDER [None]
  - FEELING ABNORMAL [None]
  - HEADACHE [None]
  - RASH [None]
